FAERS Safety Report 23808310 (Version 1)
Quarter: 2024Q2

REPORT INFORMATION
  Report Type: Spontaneous
  Country: US (occurrence: None)
  Receive Date: 20240501
  Receipt Date: 20240501
  Transmission Date: 20240715
  Serious: Yes (Hospitalization)
  Sender: FDA-Public Use
  Company Number: None

PATIENT
  Age: 64 Year
  Sex: Male
  Weight: 80 kg

DRUGS (1)
  1. RIVAROXABAN [Suspect]
     Active Substance: RIVAROXABAN
     Indication: Drug therapy
     Dates: start: 202207

REACTIONS (3)
  - Haemorrhage [None]
  - Gastrointestinal haemorrhage [None]
  - Haematoma [None]

NARRATIVE: CASE EVENT DATE: 20220703
